FAERS Safety Report 13078003 (Version 1)
Quarter: 2017Q1

REPORT INFORMATION
  Report Type: Report from Study
  Country: CA (occurrence: CA)
  Receive Date: 20170102
  Receipt Date: 20170102
  Transmission Date: 20170428
  Serious: Yes (Other)
  Sender: FDA-Public Use
  Company Number: CA-AMGEN-CANSL2016184764

PATIENT
  Age: 59 Year
  Sex: Female

DRUGS (2)
  1. PROLIA [Suspect]
     Active Substance: DENOSUMAB
     Indication: PRODUCT USED FOR UNKNOWN INDICATION
     Dosage: UNK
     Route: 065
     Dates: start: 20161206
  2. PANTOLOC [Concomitant]
     Active Substance: PANTOPRAZOLE SODIUM
     Dosage: UNK

REACTIONS (7)
  - Urticaria [Unknown]
  - Muscular weakness [Not Recovered/Not Resolved]
  - Ear swelling [Unknown]
  - Joint swelling [Unknown]
  - Pain in extremity [Unknown]
  - Diverticulitis [Unknown]
  - Back pain [Unknown]

NARRATIVE: CASE EVENT DATE: 20161211
